FAERS Safety Report 4395528-7 (Version None)
Quarter: 2004Q3

REPORT INFORMATION
  Report Type: 
  Country: None (occurrence: None)
  Receive Date: 20040713
  Receipt Date: 20040707
  Transmission Date: 20050211
  Serious: Yes (Hospitalization)
  Sender: FDA-Public Use
  Company Number: AU-BRISTOL-MYERS SQUIBB COMPANY-12633681

PATIENT
  Age: 50 Year
  Sex: Female

DRUGS (6)
  1. IFOSFAMIDE [Suspect]
     Indication: NON-HODGKIN'S LYMPHOMA
     Dosage: DAY 1
     Route: 050
     Dates: start: 20040323, end: 20040323
  2. ETOPOSIDE [Suspect]
     Indication: NON-HODGKIN'S LYMPHOMA
     Dates: start: 20040504, end: 20040504
  3. VINORELBINE TARTRATE [Suspect]
     Indication: NON-HODGKIN'S LYMPHOMA
     Dosage: DAYS 1 + 8
     Route: 050
     Dates: start: 20040323, end: 20040323
  4. GEMZAR [Suspect]
     Indication: NON-HODGKIN'S LYMPHOMA
     Dosage: DAYS 1 + 8
     Route: 050
     Dates: start: 20040323, end: 20040323
  5. PEGFILGRASTIM [Suspect]
     Indication: NON-HODGKIN'S LYMPHOMA
     Route: 050
     Dates: start: 20040331, end: 20040331
  6. CYTARABINE [Suspect]
     Indication: NON-HODGKIN'S LYMPHOMA
     Dates: start: 20040504, end: 20040504

REACTIONS (5)
  - ESCHERICHIA SEPSIS [None]
  - FEBRILE NEUTROPENIA [None]
  - INFECTION [None]
  - LACRIMAL DISORDER [None]
  - PERIANAL ABSCESS [None]
